FAERS Safety Report 5018933-4 (Version None)
Quarter: 2006Q2

REPORT INFORMATION
  Report Type: 
  Country: None (occurrence: None)
  Receive Date: 20060531
  Receipt Date: 20060518
  Transmission Date: 20061013
  Serious: Yes (Hospitalization)
  Sender: FDA-Public Use
  Company Number: 2006RL000177

PATIENT
  Age: 86 Year
  Sex: Female
  Weight: 49.8957 kg

DRUGS (13)
  1. RYTHMOL [Suspect]
     Indication: ATRIAL FIBRILLATION
     Dosage: 225 MG;BID;PO
     Route: 048
     Dates: start: 20050830
  2. WARFARIN SODIUM [Concomitant]
  3. METOPROLOL TARTRATE [Concomitant]
  4. APAP W/CODEINE [Concomitant]
  5. AMBIEN [Concomitant]
  6. MIACALCIN [Concomitant]
  7. PRAVACHOL [Concomitant]
  8. ATACAND [Concomitant]
  9. ROBAXIN [Concomitant]
  10. EVISTA [Concomitant]
  11. DETROL [Concomitant]
  12. ACIPHEX [Concomitant]
  13. PAXIL [Concomitant]

REACTIONS (4)
  - ATRIAL FIBRILLATION [None]
  - FALL [None]
  - PLEURAL EFFUSION [None]
  - RIB FRACTURE [None]
